FAERS Safety Report 18027142 (Version 3)
Quarter: 2020Q3

REPORT INFORMATION
  Report Type: Other
  Country: IT (occurrence: IT)
  Receive Date: 20200715
  Receipt Date: 20200902
  Transmission Date: 20201103
  Serious: Yes (Hospitalization)
  Sender: FDA-Public Use
  Company Number: IT-ROCHE-2642066

PATIENT
  Age: 66 Year
  Sex: Female

DRUGS (8)
  1. LORAZEPAM. [Suspect]
     Active Substance: LORAZEPAM
     Indication: DRUG ABUSE
     Dosage: DATE OF MOST RECENT DOSE OF LORAZEPAM: 03/JUN/2020
     Route: 048
     Dates: start: 20200603, end: 20200603
  2. FLURAZEPAM MONOHYDROCHLORIDE [Suspect]
     Active Substance: FLURAZEPAM MONOHYDROCHLORIDE
     Indication: DRUG ABUSE
     Dosage: DATE OF MOST RECENT DOSE OF FLURAZEPAM MONOHYDROCHLORIDE: 03/JUN/2020
     Route: 048
     Dates: start: 20200603, end: 20200603
  3. CLONAZEPAM. [Suspect]
     Active Substance: CLONAZEPAM
     Indication: DRUG ABUSE
     Dosage: DATE OF MOST RECENT DOSE OF CLONAZEPAM: 03/JUN/2020
     Route: 048
     Dates: start: 20200603, end: 20200603
  4. TRIMIPRAMINE [Suspect]
     Active Substance: TRIMIPRAMINE
     Indication: DRUG ABUSE
     Dosage: DATE OF MOST RECENT DOSE OF TRIMIPRAMINE: 03/JUN/2020
     Route: 048
     Dates: start: 20200603, end: 20200603
  5. LORMETAZEPAM [Suspect]
     Active Substance: LORMETAZEPAM
     Indication: DRUG ABUSE
     Dosage: DATE OF MOST RECENT DOSE OF LORMETAZEPAM: 03/JUN/2020
     Route: 048
     Dates: start: 20200603, end: 20200603
  6. QUETIAPINE FUMARATE. [Suspect]
     Active Substance: QUETIAPINE FUMARATE
     Indication: DRUG ABUSE
     Dosage: DATE OF MOST RECENT DOSE OF QUETIAPINE FUMARATE: 03/JUN/2020
     Route: 048
     Dates: start: 20200603, end: 20200603
  7. ABILIFY [Concomitant]
     Active Substance: ARIPIPRAZOLE
     Indication: BIPOLAR DISORDER
     Route: 048
  8. LITHIUM. [Suspect]
     Active Substance: LITHIUM
     Indication: DRUG ABUSE
     Route: 048
     Dates: start: 20200603, end: 20200603

REACTIONS (3)
  - Depressed level of consciousness [Recovering/Resolving]
  - Loss of consciousness [Recovering/Resolving]
  - Drug abuse [Unknown]

NARRATIVE: CASE EVENT DATE: 20200603
